FAERS Safety Report 6992528-5 (Version None)
Quarter: 2010Q3

REPORT INFORMATION
  Report Type: 
  Country: None (occurrence: None)
  Receive Date: 20100917
  Receipt Date: 20100908
  Transmission Date: 20110219
  Serious: Yes (Hospitalization)
  Sender: FDA-Public Use
  Company Number: IT-ASTRAZENECA-2010SE42180

PATIENT
  Age: 73 Year
  Sex: Male

DRUGS (3)
  1. SEROQUEL [Suspect]
     Indication: DEPRESSION
     Route: 048
     Dates: start: 20100823, end: 20100902
  2. ENTACT [Suspect]
     Indication: DEPRESSION
     Route: 048
     Dates: start: 20100823, end: 20100902
  3. DENIBAN [Suspect]
     Indication: DEPRESSION
     Route: 048
     Dates: start: 20050101, end: 20100731

REACTIONS (4)
  - CONFUSIONAL STATE [None]
  - DISORIENTATION [None]
  - ELECTROCARDIOGRAM QT PROLONGED [None]
  - SOMNOLENCE [None]
